FAERS Safety Report 12285038 (Version 5)
Quarter: 2017Q1

REPORT INFORMATION
  Report Type: Spontaneous
  Country: JP (occurrence: JP)
  Receive Date: 20160420
  Receipt Date: 20170306
  Transmission Date: 20170428
  Serious: Yes (Hospitalization)
  Sender: FDA-Public Use
  Company Number: JP-BAUSCH-BL-2016-008952

PATIENT
  Age: 73 Year
  Sex: Female

DRUGS (14)
  1. ALPHAGAN P [Suspect]
     Active Substance: BRIMONIDINE TARTRATE
     Indication: GLAUCOMA
     Dosage: LEFT EYE
     Route: 047
     Dates: start: 20150121, end: 20150407
  2. AZOPT [Suspect]
     Active Substance: BRINZOLAMIDE
     Indication: OCULAR HYPERTENSION
  3. ALPHAGAN P [Suspect]
     Active Substance: BRIMONIDINE TARTRATE
     Dosage: LEFT EYE
     Route: 047
     Dates: start: 20160217
  4. MIKELAN LA [Suspect]
     Active Substance: CARTEOLOL HYDROCHLORIDE
     Indication: OCULAR HYPERTENSION
  5. TRAVATAN Z [Suspect]
     Active Substance: TRAVOPROST
     Indication: GLAUCOMA
     Dosage: LEFT EYE
     Route: 047
     Dates: end: 20150407
  6. COSOPT [Concomitant]
     Active Substance: DORZOLAMIDE HYDROCHLORIDE\TIMOLOL MALEATE
     Indication: GLAUCOMA
     Dates: start: 20150225
  7. GLANATEC [Concomitant]
     Indication: OCULAR HYPERTENSION
  8. MIKELAN LA [Suspect]
     Active Substance: CARTEOLOL HYDROCHLORIDE
     Indication: GLAUCOMA
     Dosage: LEFT EYE
     Route: 047
     Dates: end: 20150225
  9. ALPHAGAN P [Suspect]
     Active Substance: BRIMONIDINE TARTRATE
     Dosage: LEFT EYE
     Route: 047
     Dates: start: 20150630, end: 20150811
  10. TRAVATAN Z [Suspect]
     Active Substance: TRAVOPROST
     Indication: OCULAR HYPERTENSION
     Dosage: LEFT EYE
     Route: 047
     Dates: start: 20150507, end: 20150811
  11. COSOPT [Concomitant]
     Active Substance: DORZOLAMIDE HYDROCHLORIDE\TIMOLOL MALEATE
     Indication: OCULAR HYPERTENSION
  12. GLANATEC [Concomitant]
     Indication: GLAUCOMA
     Dates: start: 20150225
  13. TRAVATAN Z [Suspect]
     Active Substance: TRAVOPROST
     Dosage: BOTH EYES
     Route: 047
     Dates: start: 20150811
  14. AZOPT [Suspect]
     Active Substance: BRINZOLAMIDE
     Indication: GLAUCOMA
     Dosage: LEFT EYE
     Route: 047
     Dates: end: 20150225

REACTIONS (1)
  - Intraocular pressure increased [Recovering/Resolving]

NARRATIVE: CASE EVENT DATE: 20150225
